FAERS Safety Report 8055740-2 (Version None)
Quarter: 2012Q1

REPORT INFORMATION
  Report Type: 
  Country: None (occurrence: None)
  Receive Date: 20120119
  Receipt Date: 20120111
  Transmission Date: 20120608
  Serious: Yes (Hospitalization)
  Sender: FDA-Public Use
  Company Number: US-US-EMD SERONO, INC.-7106508

PATIENT
  Sex: Female

DRUGS (1)
  1. REBIF [Suspect]
     Indication: MULTIPLE SCLEROSIS
     Route: 058
     Dates: start: 20110829

REACTIONS (5)
  - INFLUENZA LIKE ILLNESS [None]
  - DIZZINESS [None]
  - PAIN [None]
  - DYSPNOEA [None]
  - ASTHENIA [None]
